FAERS Safety Report 6942785-6 (Version None)
Quarter: 2010Q3

REPORT INFORMATION
  Report Type: 
  Country: None (occurrence: None)
  Receive Date: 20100824
  Receipt Date: 20100824
  Transmission Date: 20110219
  Serious: Yes (Hospitalization)
  Sender: FDA-Public Use
  Company Number: None

PATIENT
  Sex: Male

DRUGS (13)
  1. GAMMAGARD [Suspect]
     Indication: TRANSPLANT
     Dosage: 35 G 245 MI/HR IVPB
     Dates: start: 20100512
  2. ACYCLOVIR SODIUM [Concomitant]
  3. AMLODIPINE [Concomitant]
  4. ATENOLOL [Concomitant]
  5. CALCIUM [Concomitant]
  6. CAMPHOR-MENTHOL [Concomitant]
  7. VITAMIN D2 [Concomitant]
  8. FUROSEMIDE [Concomitant]
  9. POTASSIUM CHLORIDE [Concomitant]
  10. LISINOPRIL AND HYDROCHLOROTHIAZIDE [Concomitant]
  11. LOMOTIL [Concomitant]
  12. PANTOPRAZOLE [Concomitant]
  13. PROCHLORPERAZINE MALEATE [Concomitant]

REACTIONS (6)
  - BACK PAIN [None]
  - CHILLS [None]
  - HYPERHIDROSIS [None]
  - INFUSION RELATED REACTION [None]
  - NAUSEA [None]
  - OXYGEN SATURATION DECREASED [None]
